FAERS Safety Report 14497156 (Version 1)
Quarter: 2018Q1

REPORT INFORMATION
  Report Type: Spontaneous
  Country: US (occurrence: US)
  Receive Date: 20180206
  Receipt Date: 20180206
  Transmission Date: 20180509
  Serious: No
  Sender: FDA-Public Use
  Company Number: None

PATIENT
  Age: 65 Year
  Sex: Female
  Weight: 58.06 kg

DRUGS (7)
  1. ESTRADIOL TRANSDERMAL SYSTEM [Suspect]
     Active Substance: ESTRADIOL
     Indication: MENOPAUSAL SYMPTOMS
     Dosage: 0.05 + 0.1  2 PATCHES  EVERY 3 DAYS  ON SKIN?
     Route: 062
     Dates: start: 20150701, end: 20150715
  2. PRILOSEC [Concomitant]
     Active Substance: OMEPRAZOLE MAGNESIUM
  3. VIVELLE-DOT [Concomitant]
     Active Substance: ESTRADIOL
  4. ESTRADIOL TRANSDERMAL SYSTEM [Suspect]
     Active Substance: ESTRADIOL
     Indication: INCONTINENCE
     Dosage: 0.05 + 0.1  2 PATCHES  EVERY 3 DAYS  ON SKIN?
     Route: 062
     Dates: start: 20150701, end: 20150715
  5. ESTRADIOL TRANSDERMAL SYSTEM [Suspect]
     Active Substance: ESTRADIOL
     Indication: POOR QUALITY SLEEP
     Dosage: 0.05 + 0.1  2 PATCHES  EVERY 3 DAYS  ON SKIN?
     Route: 062
     Dates: start: 20150701, end: 20150715
  6. VIVELLE DOT 0.1 [Concomitant]
  7. CLORAZAPATE [Concomitant]

REACTIONS (2)
  - Product substitution issue [None]
  - Treatment failure [None]

NARRATIVE: CASE EVENT DATE: 20150107
